FAERS Safety Report 7958879-2 (Version None)
Quarter: 2011Q4

REPORT INFORMATION
  Report Type: 
  Country: None (occurrence: None)
  Receive Date: 20111201
  Receipt Date: 20111125
  Transmission Date: 20120403
  Serious: Yes (Other)
  Sender: FDA-Public Use
  Company Number: AUR-APL-2011-05953

PATIENT
  Age: 29 Year
  Sex: Male

DRUGS (4)
  1. IBUPROFEN [Suspect]
     Indication: TONSILLITIS
     Dosage: (2 DOSAGE FORMS)
     Dates: start: 20110401
  2. NAPROXEN [Suspect]
     Indication: PHLEBITIS
     Dosage: ORAL
     Route: 048
     Dates: start: 20101018
  3. NAPROXEN [Suspect]
     Indication: BACK PAIN
     Dosage: ORAL
     Route: 048
     Dates: start: 20101018
  4. PHENOXYMETHYLPENICILLIN [Suspect]
     Indication: TONSILLITIS
     Dosage: (250 MG)
     Dates: start: 20110401

REACTIONS (10)
  - DISTURBANCE IN ATTENTION [None]
  - REACTION TO DRUG EXCIPIENTS [None]
  - DISORIENTATION [None]
  - MUSCULAR WEAKNESS [None]
  - HYPOAESTHESIA ORAL [None]
  - NAUSEA [None]
  - HYPERCHLORHYDRIA [None]
  - FEELING ABNORMAL [None]
  - HEART RATE INCREASED [None]
  - DYSPNOEA [None]
